FAERS Safety Report 5567191-0 (Version None)
Quarter: 2007Q4

REPORT INFORMATION
  Report Type: 
  Country: None (occurrence: None)
  Receive Date: 20071219
  Receipt Date: 20071213
  Transmission Date: 20080405
  Serious: Yes (Hospitalization)
  Sender: FDA-Public Use
  Company Number: US-ELI_LILLY_AND_COMPANY-US200712002929

PATIENT
  Sex: Female
  Weight: 115.65 kg

DRUGS (13)
  1. BYETTA [Suspect]
     Indication: DIABETES MELLITUS
     Dosage: 5 UG, 2/D
     Route: 058
     Dates: start: 20070601, end: 20070701
  2. BYETTA [Suspect]
     Dosage: 10 UG, DAILY (1/D)
     Route: 058
     Dates: start: 20070701, end: 20070701
  3. BYETTA [Suspect]
     Dosage: 5 UG, 2/D
     Route: 058
     Dates: start: 20070701, end: 20071021
  4. BYETTA [Suspect]
     Dosage: 5 UG, 2/D
     Route: 058
     Dates: start: 20071213
  5. LANTUS [Concomitant]
     Indication: DIABETES MELLITUS
     Dosage: 15 U, EACH EVENING
     Route: 058
     Dates: start: 20070701
  6. METFORMIN HCL [Concomitant]
     Indication: DIABETES MELLITUS
     Dosage: 1500 MG, DAILY (1/D)
     Route: 048
  7. VYTORIN [Concomitant]
     Dosage: 1 D/F, DAILY (1/D)
     Route: 048
  8. ASPIRIN [Concomitant]
     Dosage: 81 MG, DAILY (1/D)
     Route: 048
  9. LEVOTHYROXINE SODIUM [Concomitant]
     Dosage: 0.125 UG, DAILY (1/D)
     Route: 048
  10. XOPENEX [Concomitant]
     Indication: CHRONIC OBSTRUCTIVE PULMONARY DISEASE
     Route: 055
  11. PULMICORT RESPULES [Concomitant]
     Indication: CHRONIC OBSTRUCTIVE PULMONARY DISEASE
     Dosage: UNK, AS NEEDED
     Route: 055
  12. DIOVAN /SCH/ [Concomitant]
     Indication: HYPERTENSION
     Dosage: 320 MG, DAILY (1/D)
     Route: 048
     Dates: end: 20071030
  13. DIOVAN /SCH/ [Concomitant]
     Dosage: 160 MG, UNKNOWN
     Route: 048
     Dates: start: 20071213

REACTIONS (7)
  - BLOOD GLUCOSE ABNORMAL [None]
  - CARDIAC DISORDER [None]
  - CHEST PAIN [None]
  - DYSPNOEA [None]
  - INTERVERTEBRAL DISC PROTRUSION [None]
  - RENAL DISORDER [None]
  - VOMITING [None]
